FAERS Safety Report 9430123 (Version 2)
Quarter: 2013Q3

REPORT INFORMATION
  Report Type: Report from Study
  Country: ES (occurrence: ES)
  Receive Date: 20130730
  Receipt Date: 20130916
  Transmission Date: 20140515
  Serious: Yes (Disabling, Other)
  Sender: FDA-Public Use
  Company Number: ES-JNJFOC-20130714471

PATIENT
  Age: 32 Year
  Sex: Male
  Weight: 68 kg

DRUGS (3)
  1. REMICADE [Suspect]
     Indication: SPONDYLOARTHROPATHY
     Route: 042
     Dates: start: 20100701, end: 201010
  2. REMICADE [Suspect]
     Indication: CROHN^S DISEASE
     Route: 042
     Dates: start: 20100701, end: 201010
  3. IMUREL [Concomitant]
     Indication: CROHN^S DISEASE
     Route: 048
     Dates: start: 200811, end: 201011

REACTIONS (1)
  - Optic neuropathy [Not Recovered/Not Resolved]
